FAERS Safety Report 14773239 (Version 4)
Quarter: 2019Q1

REPORT INFORMATION
  Report Type: Spontaneous
  Country: DK (occurrence: DK)
  Receive Date: 20180418
  Receipt Date: 20190108
  Transmission Date: 20190417
  Serious: Yes (Death, Other)
  Sender: FDA-Public Use
  Company Number: DK-ACCORD-065701

PATIENT
  Age: 28 Year
  Sex: Male

DRUGS (5)
  1. PHENAZEPAM [Suspect]
     Active Substance: PHENAZEPAM
  2. DIAZEPAM. [Suspect]
     Active Substance: DIAZEPAM
     Dosage: 0.15MG/KG
  3. CLONAZEPAM. [Suspect]
     Active Substance: CLONAZEPAM
     Dosage: 0.19 MG/KG
  4. BUPRENORPHINE. [Suspect]
     Active Substance: BUPRENORPHINE
     Dosage: 0.002MG/KG
  5. FENTANYL. [Suspect]
     Active Substance: FENTANYL

REACTIONS (2)
  - Overdose [Fatal]
  - Aspiration [Fatal]
